FAERS Safety Report 5154812-X (Version None)
Quarter: 2006Q4

REPORT INFORMATION
  Report Type: 
  Country: None (occurrence: None)
  Receive Date: 20061121
  Receipt Date: 20061024
  Transmission Date: 20070319
  Serious: Yes (Other)
  Sender: FDA-Public Use
  Company Number: PHEH2006US13337

PATIENT
  Age: 86 Year
  Sex: Male

DRUGS (12)
  1. DIOVAN [Suspect]
     Indication: HYPERTENSION
     Dosage: 160 MG, QD
     Route: 048
     Dates: start: 20060101, end: 20061101
  2. ASPIRIN [Concomitant]
     Dosage: 81 MG, QD
  3. CARDIZEM [Concomitant]
     Dosage: 4 MG, QD
  4. LASIX [Concomitant]
     Dosage: 20 MG, QD
  5. POTASSIUM CHLORIDE [Concomitant]
     Dosage: 10 MEQ, QD
  6. COREG [Concomitant]
     Dosage: 25 MG, BID
  7. SPIRONOLACTONE [Concomitant]
     Dosage: 25 MG, QD
     Route: 048
  8. COQ10 [Concomitant]
     Route: 048
  9. DIGOXIN [Concomitant]
     Dosage: 0.125 MG, QD
     Route: 048
  10. VITAMIN E [Concomitant]
     Dosage: 400 IU, QD
     Route: 048
  11. PLAVIX [Concomitant]
     Dosage: 75 MG, QD
     Route: 048
  12. DOXAZOSIN MESYLATE [Concomitant]
     Dosage: UNK, QD
     Route: 048

REACTIONS (4)
  - CHRONIC FATIGUE SYNDROME [None]
  - ELECTROMYOGRAM ABNORMAL [None]
  - MUSCULAR WEAKNESS [None]
  - NEUROPATHY PERIPHERAL [None]
